FAERS Safety Report 10459922 (Version 1)
Quarter: 2014Q3

REPORT INFORMATION
  Report Type: Spontaneous
  Country: GB (occurrence: GB)
  Receive Date: 20140917
  Receipt Date: 20140917
  Transmission Date: 20150326
  Serious: Yes (Disabling)
  Sender: FDA-Public Use
  Company Number: GB-WATSON-2014-19980

PATIENT
  Age: 78 Year
  Sex: Male

DRUGS (1)
  1. CEFUROXIME SODIUM (UNKNOWN) [Suspect]
     Active Substance: CEFUROXIME SODIUM
     Indication: ANTIBIOTIC PROPHYLAXIS
     Dosage: 10 MG, UNKNOWN. STRENGTH OF 100MG/ML WITH 0.1ML DOSE PROVIDING 10MG BEING ADMINISTERED
     Route: 031
     Dates: start: 20140726, end: 20140726

REACTIONS (2)
  - Wrong technique in drug usage process [Unknown]
  - Visual impairment [Not Recovered/Not Resolved]

NARRATIVE: CASE EVENT DATE: 20140727
